FAERS Safety Report 5533972-2 (Version None)
Quarter: 2007Q4

REPORT INFORMATION
  Report Type: 
  Country: None (occurrence: None)
  Receive Date: 20071129
  Receipt Date: 20071122
  Transmission Date: 20080405
  Serious: Yes (Other)
  Sender: FDA-Public Use
  Company Number: GXKR2007DE10010

PATIENT
  Sex: Female

DRUGS (2)
  1. DICLAC ID (NGX)(DICOLFENAC) DISPERSIBLE TABLET, 75MG [Suspect]
     Dosage: 75 MG, QD, ORAL
     Route: 048
     Dates: start: 20060929, end: 20060929
  2. LEVOTHYROXINE SODIUM [Concomitant]

REACTIONS (7)
  - DYSPHAGIA [None]
  - DYSPHONIA [None]
  - DYSPNOEA [None]
  - FACE OEDEMA [None]
  - HYPOAESTHESIA ORAL [None]
  - LYMPHADENOPATHY [None]
  - SALIVARY HYPERSECRETION [None]
